FAERS Safety Report 7396096-8 (Version None)
Quarter: 2011Q2

REPORT INFORMATION
  Report Type: 
  Country: None (occurrence: None)
  Receive Date: 20110406
  Receipt Date: 20110330
  Transmission Date: 20111010
  Serious: Yes (Other)
  Sender: FDA-Public Use
  Company Number: US-JNJFOC-20110401164

PATIENT
  Sex: Female
  Weight: 95.26 kg

DRUGS (7)
  1. ENALAPRIL [Concomitant]
     Indication: HYPERTENSION
     Dosage: FOR A PERIOD OF 14 DAYS
     Route: 048
  2. LEVOTHYROXINE [Concomitant]
     Indication: HYPOTHYROIDISM
     Dosage: FOR A PERIOD OF 14 DAYS
     Route: 048
  3. SIMVASTATIN [Concomitant]
     Indication: BLOOD CHOLESTEROL
     Dosage: FOR A PERIOD OF 14 DAYS
     Route: 048
  4. LEVAQUIN [Suspect]
     Route: 048
  5. LEVAQUIN [Suspect]
     Indication: SINUSITIS
     Dosage: FOR A PERIOD OF 14 DAYS
     Route: 048
  6. LEVAQUIN [Suspect]
     Dosage: FOR A PERIOD OF 5 DAYS
     Route: 048
  7. LEVAQUIN [Suspect]
     Route: 048

REACTIONS (3)
  - TENDON PAIN [None]
  - TENDON DISORDER [None]
  - BURSITIS [None]
